FAERS Safety Report 9238338 (Version 1)
Quarter: 2013Q2

REPORT INFORMATION
  Report Type: Spontaneous
  Country: US (occurrence: None)
  Receive Date: 20130417
  Receipt Date: 20130417
  Transmission Date: 20140414
  Serious: Yes (Death)
  Sender: FDA-Public Use
  Company Number: None

PATIENT
  Age: 68 Year
  Sex: Male
  Weight: 52.62 kg

DRUGS (1)
  1. LEVAQUIN [Suspect]
     Indication: MASS EXCISION
     Dosage: 500 MG, 1 PER DAY FOR 7 DAYS
     Dates: start: 20121229, end: 20130104

REACTIONS (7)
  - Pain in extremity [None]
  - Arthralgia [None]
  - Depression [None]
  - Confusional state [None]
  - Suspiciousness [None]
  - Speech disorder [None]
  - Completed suicide [None]
